FAERS Safety Report 8838247 (Version 1)
Quarter: 2012Q4

REPORT INFORMATION
  Report Type: 
  Country: US (occurrence: US)
  Receive Date: 20121012
  Receipt Date: 20121012
  Transmission Date: 20130627
  Serious: No
  Sender: FDA-Public Use
  Company Number: US-PFIZER INC-2012249471

PATIENT

DRUGS (1)
  1. LEVOXYL [Suspect]
     Dosage: 75 ug, UNK

REACTIONS (4)
  - Asthenia [Unknown]
  - Tremor [Unknown]
  - Feeling abnormal [Unknown]
  - Malaise [Unknown]
